FAERS Safety Report 14951281 (Version 3)
Quarter: 2019Q1

REPORT INFORMATION
  Report Type: Report from Study
  Country: CA (occurrence: CA)
  Receive Date: 20180530
  Receipt Date: 20190110
  Transmission Date: 20190417
  Serious: Yes (Other)
  Sender: FDA-Public Use
  Company Number: PHHY2017CA091934

PATIENT
  Age: 34 Year
  Sex: Female

DRUGS (8)
  1. XOLAIR [Suspect]
     Active Substance: OMALIZUMAB
     Indication: CHRONIC SPONTANEOUS URTICARIA
     Dosage: 300 MG, EVERY 4 WEEKS
     Route: 058
     Dates: start: 20170616
  2. XOLAIR [Suspect]
     Active Substance: OMALIZUMAB
     Dosage: 300 MG,  EVERY 4 WEEKS
     Route: 058
     Dates: start: 20180425
  3. MONTELUKAST SODIUM. [Suspect]
     Active Substance: MONTELUKAST SODIUM
     Indication: PRODUCT USED FOR UNKNOWN INDICATION
     Dosage: 1 DF, QD
     Route: 048
     Dates: start: 20170216
  4. REACTINE [CETIRIZINE HYDROCHLORIDE] [Concomitant]
     Active Substance: CETIRIZINE HYDROCHLORIDE
     Indication: PRODUCT USED FOR UNKNOWN INDICATION
     Dosage: 2 DF, QD
     Route: 048
     Dates: start: 20170216
  5. PREDNISONE. [Concomitant]
     Active Substance: PREDNISONE
     Indication: PRODUCT USED FOR UNKNOWN INDICATION
     Dosage: 1 DF, QD
     Route: 048
     Dates: start: 20170223
  6. XOLAIR [Suspect]
     Active Substance: OMALIZUMAB
     Dosage: UNK
     Route: 058
     Dates: start: 20170803
  7. XOLAIR [Suspect]
     Active Substance: OMALIZUMAB
     Dosage: UNK
     Route: 058
     Dates: start: 20170714
  8. XOLAIR [Suspect]
     Active Substance: OMALIZUMAB
     Dosage: UNK
     Route: 058
     Dates: start: 20180328

REACTIONS (15)
  - Urticaria [Not Recovered/Not Resolved]
  - Urticaria [Recovered/Resolved]
  - Inappropriate schedule of product administration [Unknown]
  - Skin plaque [Recovered/Resolved]
  - Fibroma [Unknown]
  - Urticaria [Recovered/Resolved]
  - Pruritus generalised [Unknown]
  - Stress [Unknown]
  - Burning sensation [Recovered/Resolved]
  - Suicidal ideation [Unknown]
  - Pruritus [Recovered/Resolved]
  - Crying [Unknown]
  - Rash erythematous [Unknown]
  - Peripheral swelling [Unknown]
  - Acne [Recovered/Resolved]

NARRATIVE: CASE EVENT DATE: 201706
